FAERS Safety Report 12172159 (Version 1)
Quarter: 2016Q1

REPORT INFORMATION
  Report Type: Spontaneous
  Country: GB (occurrence: GB)
  Receive Date: 20160311
  Receipt Date: 20160311
  Transmission Date: 20160526
  Serious: Yes (Hospitalization, Disabling)
  Sender: FDA-Public Use
  Company Number: GB-WATSON-2016-04602

PATIENT
  Age: 66 Year
  Sex: Female

DRUGS (7)
  1. PREDNISOLONE (UNKNOWN) [Suspect]
     Active Substance: PREDNISOLONE
     Dosage: 15 MG, DAILY; LONG TERM - BEING GRADUALLY TAPERED OVER TIME.
     Route: 048
     Dates: start: 20160216
  2. PREDNISOLONE (UNKNOWN) [Suspect]
     Active Substance: PREDNISOLONE
     Dosage: 30 MG, DAILY; LONG TERM - BEING GRADUALLY TAPERED OVER TIME.
     Route: 048
     Dates: start: 20160104, end: 20160201
  3. PREDNISOLONE (UNKNOWN) [Suspect]
     Active Substance: PREDNISOLONE
     Indication: PEMPHIGOID
     Dosage: 50 MG, DAILY; LONG TERM - BEING GRADUALLY TAPERED OVER TIME.
     Route: 048
     Dates: start: 20151222, end: 20160103
  4. AZATHIOPRINE. [Concomitant]
     Active Substance: AZATHIOPRINE
     Indication: PEMPHIGOID
     Dosage: 50 MG, DAILY
     Route: 048
     Dates: start: 20151222
  5. PREDNISOLONE (UNKNOWN) [Suspect]
     Active Substance: PREDNISOLONE
     Dosage: 20 MG, DAILY; LONG TERM - BEING GRADUALLY TAPERED OVER TIME.
     Route: 048
     Dates: start: 20160202, end: 20160215
  6. PREDNISOLONE (UNKNOWN) [Suspect]
     Active Substance: PREDNISOLONE
     Dosage: 20 MG, DAILY; LONG TERM - BEING GRADUALLY TAPERED OVER TIME.
     Route: 048
     Dates: end: 20151221
  7. CITALOPRAM [Concomitant]
     Active Substance: CITALOPRAM HYDROBROMIDE
     Indication: PRODUCT USED FOR UNKNOWN INDICATION
     Dosage: 20 MG, QAM
     Route: 048

REACTIONS (2)
  - Substance-induced psychotic disorder [Unknown]
  - Hallucination [Recovered/Resolved]
